FAERS Safety Report 8495899-6 (Version None)
Quarter: 2012Q3

REPORT INFORMATION
  Report Type: 
  Country: None (occurrence: None)
  Receive Date: 20120709
  Receipt Date: 20120702
  Transmission Date: 20120928
  Serious: Yes (Hospitalization, Other)
  Sender: FDA-Public Use
  Company Number: US-MERCK-1110USA02430

PATIENT

DRUGS (21)
  1. CALCIUM (UNSPECIFIED) [Concomitant]
     Indication: OSTEOPENIA
     Dosage: 1800 MG, QD
     Dates: start: 19900101, end: 20100101
  2. BOTOX [Concomitant]
  3. LORAZEPAM [Concomitant]
  4. LIORAM [Concomitant]
  5. DARVON [Concomitant]
  6. IBUPROFEN [Concomitant]
  7. RECLAST [Suspect]
     Indication: OSTEOPENIA
     Dosage: 35 ML, UNK
     Route: 042
     Dates: start: 20090610, end: 20100610
  8. HORMONES (UNSPECIFIED) [Concomitant]
     Dates: start: 19940101, end: 20010101
  9. NAPROXEN [Concomitant]
  10. FOSAMAX [Suspect]
     Route: 048
  11. FENTANYL [Concomitant]
  12. LIDODERM [Concomitant]
  13. MK-0130 [Concomitant]
  14. FOSAMAX [Suspect]
     Indication: OSTEOPENIA
     Dosage: 10 MG, UNK
     Route: 048
     Dates: start: 19960901, end: 20010830
  15. ULTRAM [Concomitant]
  16. OXYCODONE HCL [Concomitant]
  17. SOMA [Concomitant]
  18. METAXALONE [Concomitant]
  19. METHADON HCL TAB [Concomitant]
  20. FOSAMAX [Suspect]
     Dosage: 70 MG, UNK
     Route: 048
     Dates: start: 20010701, end: 20081201
  21. HYDROCODONE [Concomitant]

REACTIONS (55)
  - HYPERTENSION [None]
  - NEPHROLITHIASIS [None]
  - UTERINE HAEMORRHAGE [None]
  - TYPE V HYPERLIPIDAEMIA [None]
  - INSOMNIA [None]
  - CATARACT [None]
  - URINARY TRACT INFECTION [None]
  - PAIN IN EXTREMITY [None]
  - UNEVALUABLE EVENT [None]
  - FEMUR FRACTURE [None]
  - POSTMENOPAUSAL HAEMORRHAGE [None]
  - ENDOMETRIAL CANCER STAGE I [None]
  - ANKLE FRACTURE [None]
  - SPINAL OSTEOARTHRITIS [None]
  - BUNION [None]
  - SCOLIOSIS [None]
  - MASS [None]
  - BURSITIS [None]
  - SPINAL COMPRESSION FRACTURE [None]
  - MULTIPLE FRACTURES [None]
  - PNEUMONIA [None]
  - MIGRAINE [None]
  - GAIT DISTURBANCE [None]
  - TENDONITIS [None]
  - PAIN [None]
  - FALL [None]
  - BRONCHITIS [None]
  - DEPRESSION [None]
  - OEDEMA PERIPHERAL [None]
  - TEMPERATURE INTOLERANCE [None]
  - MULTIPLE MYELOMA [None]
  - HYPERCHOLESTEROLAEMIA [None]
  - MULTIPLE ALLERGIES [None]
  - HEADACHE [None]
  - NAUSEA [None]
  - NASOPHARYNGITIS [None]
  - LOW TURNOVER OSTEOPATHY [None]
  - UTERINE POLYP [None]
  - INTERVERTEBRAL DISC DEGENERATION [None]
  - OSTEOARTHRITIS [None]
  - FAECAL INCONTINENCE [None]
  - CONTRAINDICATION TO MEDICAL TREATMENT [None]
  - MUSCULAR WEAKNESS [None]
  - FATIGUE [None]
  - DEVICE FAILURE [None]
  - SCIATICA [None]
  - INTERVERTEBRAL DISC PROTRUSION [None]
  - ANAL SPHINCTER ATONY [None]
  - FRACTURE NONUNION [None]
  - CALCULUS URETERIC [None]
  - NECK PAIN [None]
  - COLITIS [None]
  - HYPERCALCAEMIA [None]
  - MONOCLONAL GAMMOPATHY [None]
  - TENOSYNOVITIS STENOSANS [None]
